FAERS Safety Report 7232456-3 (Version None)
Quarter: 2011Q1

REPORT INFORMATION
  Report Type: 
  Country: None (occurrence: None)
  Receive Date: 20110119
  Receipt Date: 20110114
  Transmission Date: 20110831
  Serious: No
  Sender: FDA-Public Use
  Company Number: US-PFIZER INC-2011010178

PATIENT
  Sex: Female
  Weight: 54.4 kg

DRUGS (7)
  1. ALENDRONATE SODIUM [Concomitant]
     Dosage: 70 MG, WEEKLY
  2. BIOTIN [Concomitant]
     Dosage: 1000 MG, 2X/DAY
  3. CALCIUM WITH VITAMIN D [Concomitant]
     Dosage: UNK, 2X/DAY
  4. ACETYLSALICYLIC ACID [Concomitant]
     Dosage: 81 MG, DAILY
  5. LIPITOR [Suspect]
     Indication: BLOOD CHOLESTEROL INCREASED
     Dosage: 20 MG, DAILY
     Route: 048
  6. FISH OIL [Concomitant]
     Dosage: 1000 UNITS, 2X/DAY
  7. VITAMIN D [Concomitant]
     Dosage: 50000 UNITS, WEEKLY

REACTIONS (3)
  - PAIN IN EXTREMITY [None]
  - MYALGIA [None]
  - ARTHRITIS [None]
